FAERS Safety Report 16935260 (Version 1)
Quarter: 2019Q4

REPORT INFORMATION
  Report Type: Spontaneous
  Country: US (occurrence: US)
  Receive Date: 20191018
  Receipt Date: 20191018
  Transmission Date: 20200122
  Serious: Yes (Hospitalization)
  Sender: FDA-Public Use
  Company Number: US-MYLANLABS-2019M1098874

PATIENT
  Age: 12 Month
  Sex: Male

DRUGS (1)
  1. DOXYCYCLINE. [Suspect]
     Active Substance: DOXYCYCLINE
     Indication: VENOLYMPHATIC MALFORMATION
     Dosage: 760 MILLIGRAM 24 HOURS
     Route: 065

REACTIONS (3)
  - Laryngeal injury [Recovered/Resolved]
  - Aspiration [Recovered/Resolved]
  - Dysphagia [Recovered/Resolved]
